FAERS Safety Report 10098654 (Version 2)
Quarter: 2014Q2

REPORT INFORMATION
  Report Type: Spontaneous
  Country: FR (occurrence: FR)
  Receive Date: 20140423
  Receipt Date: 20140527
  Transmission Date: 20141212
  Serious: Yes (Hospitalization)
  Sender: FDA-Public Use
  Company Number: FR-NOVOPROD-407312

PATIENT
  Age: 65 Year
  Sex: Female

DRUGS (11)
  1. VICTOZA [Suspect]
     Indication: PRODUCT USED FOR UNKNOWN INDICATION
     Dosage: 1.2 MG, QD
     Route: 058
     Dates: start: 20130703, end: 20140129
  2. ALDACTONE                          /00006201/ [Concomitant]
     Dosage: UNK
     Route: 065
     Dates: start: 2008
  3. LASILIX                            /00032601/ [Concomitant]
     Dosage: UNK
     Route: 065
     Dates: start: 2008
  4. DAONIL [Concomitant]
     Dosage: UNK
     Route: 065
  5. STAGID [Concomitant]
     Dosage: UNK
     Route: 065
     Dates: start: 201307
  6. LESCOL [Concomitant]
     Dosage: UNK
     Route: 065
     Dates: start: 201307
  7. CATAPRESSAN                        /00171101/ [Concomitant]
     Dosage: UNK
     Route: 065
     Dates: start: 201307
  8. COVERAM [Concomitant]
     Dosage: UNK
     Route: 065
     Dates: start: 201307
  9. INEXIUM                            /01479302/ [Concomitant]
     Dosage: UNK
     Route: 065
     Dates: start: 201307
  10. XANAX [Concomitant]
     Dosage: UNK
     Route: 065
     Dates: start: 201307
  11. SEROPLEX [Concomitant]
     Dosage: UNK
     Route: 065
     Dates: start: 201307

REACTIONS (1)
  - Pemphigoid [Recovering/Resolving]
